FAERS Safety Report 24895017 (Version 1)
Quarter: 2025Q1

REPORT INFORMATION
  Report Type: Other
  Country: IN (occurrence: IN)
  Receive Date: 20250128
  Receipt Date: 20250128
  Transmission Date: 20250409
  Serious: Yes (Other)
  Sender: B BRAUN
  Company Number: IN-B.Braun Medical Inc.-2169934

PATIENT
  Age: 4 Year
  Sex: Male

DRUGS (8)
  1. ACETAMINOPHEN [Suspect]
     Active Substance: ACETAMINOPHEN
     Indication: Pyrexia
  2. FOSPHENYTOIN [Concomitant]
     Active Substance: FOSPHENYTOIN
  3. Ayurveda treatment [Concomitant]
  4. BACLOFEN [Concomitant]
     Active Substance: BACLOFEN
  5. PHENOBARBITAL [Concomitant]
     Active Substance: PHENOBARBITAL
  6. N/2 saline [Concomitant]
  7. Dopamine infusion [Concomitant]
  8. CEFTRIAXONE [Concomitant]
     Active Substance: CEFTRIAXONE

REACTIONS (2)
  - Drug ineffective [Unknown]
  - Off label use [Unknown]
